FAERS Safety Report 13069578 (Version 1)
Quarter: 2016Q4

REPORT INFORMATION
  Report Type: Spontaneous
  Country: US (occurrence: US)
  Receive Date: 20161228
  Receipt Date: 20161228
  Transmission Date: 20170207
  Serious: No
  Sender: FDA-Public Use
  Company Number: US-BAYER-2016-245979

PATIENT
  Age: 3 Year
  Sex: Male

DRUGS (1)
  1. CLARITIN-D 24 HOUR [Suspect]
     Active Substance: LORATADINE\PSEUDOEPHEDRINE SULFATE
     Dosage: UNK

REACTIONS (3)
  - Accidental exposure to product by child [Unknown]
  - Overdose [Unknown]
  - Failure of child resistant mechanism for pharmaceutical product [None]

NARRATIVE: CASE EVENT DATE: 20161227
